FAERS Safety Report 5927357-4 (Version None)
Quarter: 2008Q4

REPORT INFORMATION
  Report Type: 
  Country: None (occurrence: None)
  Receive Date: 20081021
  Receipt Date: 20081013
  Transmission Date: 20090506
  Serious: Yes (Hospitalization)
  Sender: FDA-Public Use
  Company Number: 2008AL011163

PATIENT
  Age: 16 Month
  Sex: Male

DRUGS (3)
  1. DEXAMETHASONE [Suspect]
     Indication: HISTIOCYTOSIS HAEMATOPHAGIC
  2. CYCLOSPORINE [Concomitant]
  3. ETOPOSIDE [Concomitant]

REACTIONS (7)
  - ERYTHEMA [None]
  - INDURATION [None]
  - INJECTION SITE EXTRAVASATION [None]
  - OEDEMA [None]
  - SKIN NECROSIS [None]
  - WOUND NECROSIS [None]
  - ZYGOMYCOSIS [None]
